FAERS Safety Report 9841081 (Version 1)
Quarter: 2013Q4

REPORT INFORMATION
  Report Type: Spontaneous
  Country: US (occurrence: None)
  Receive Date: 20131219
  Receipt Date: 20131219
  Transmission Date: 20140711
  Serious: Yes (Other)
  Sender: FDA-Public Use
  Company Number: 163-20785-12091068

PATIENT
  Age: 65 Year
  Sex: Male
  Weight: 83.46 kg

DRUGS (26)
  1. THALOMID [Suspect]
     Indication: PLASMA CELL MYELOMA
     Dosage: 66.6667 MG, 28 IN 42 D, PO
     Route: 048
     Dates: start: 20081202, end: 20090117
  2. MELPHALAN(MELPHALAN) [Concomitant]
  3. PREDNISONE(PREDNISONE) [Concomitant]
  4. BORTEZOMIB(BORTEZOMIB) [Concomitant]
  5. DEXAMETHASONE(DEXAMETHASONE) [Concomitant]
  6. ACYCLOVIR(ACICLOVIR) [Concomitant]
  7. ADVAIR DISKUS(SERETIDE MITE) [Concomitant]
  8. ALBUTEROL SULFATE (SALBUTAMOL SULFATE) [Concomitant]
  9. AMBIEN (ZOLPIDEM TARTRATE) [Concomitant]
  10. COENZYME Q10(UBIDECARENONE) [Concomitant]
  11. COLCHICINE(COLCHICINE) [Concomitant]
  12. GUAIFENESIN/DEXTROMETHORPHAN(TUSSIN DM)(SYRUP) [Concomitant]
  13. DULCOLAZ(BISACODYL) [Concomitant]
  14. FOLIC ACID(FOLIC ACID) [Concomitant]
  15. IRON(IRON) [Concomitant]
  16. ISOSORBIDE MONONITRATE(ISOSORBIDE MONONITRATE) [Concomitant]
  17. LACTULOSE(LACTULOSE)(SOLUTION) [Concomitant]
  18. LASIX(FUROSEMIDE) [Concomitant]
  19. MOM(MAGNESIUM HYDROXIDE) [Concomitant]
  20. METOPROLOL SUCCINATE (METOPROLOL SUCCINATE [Concomitant]
  21. OXYCODONE HCL (OXYCODONE HDYROCHLORIDE) [Concomitant]
  22. POTASSIUM(POTASSIUM) [Concomitant]
  23. ROSUVASTATIN CALCIUM (ROSUVASTATIN CALCIUM) [Concomitant]
  24. SPIRONOLACTONE(SPIRONOLACTONE) [Concomitant]
  25. VITAMIN D3 (COLECALCIFEROL) [Concomitant]
  26. COUMADIN (WARFARIN SODIUM) [Concomitant]

REACTIONS (2)
  - Deep vein thrombosis [None]
  - Full blood count abnormal [None]
